FAERS Safety Report 9002318 (Version 1)
Quarter: 2013Q1

REPORT INFORMATION
  Report Type: Spontaneous
  Country: BR (occurrence: BR)
  Receive Date: 20130107
  Receipt Date: 20130107
  Transmission Date: 20140127
  Serious: Yes (Hospitalization, Other)
  Sender: FDA-Public Use
  Company Number: BR-PFIZER INC-2013003415

PATIENT
  Age: 88 Year
  Sex: Female

DRUGS (5)
  1. XALATAN [Suspect]
     Indication: GLAUCOMA
     Dosage: 3 UG (1 DROP IN EACH EYE), 1X/DAY
     Route: 047
     Dates: start: 20110413
  2. ARADOIS [Concomitant]
     Indication: HYPERTENSION
     Dosage: 1 TABLET OF 50 MG, 1X/DAY
  3. CALTRATE [Concomitant]
     Indication: OSTEOPOROSIS
     Dosage: UNK
  4. CITALOPRAM [Concomitant]
     Indication: ANTIDEPRESSANT THERAPY
     Dosage: UNK
  5. CRESTOR [Concomitant]
     Dosage: UNK

REACTIONS (7)
  - Cerebrovascular accident [Unknown]
  - Convulsion [Not Recovered/Not Resolved]
  - Aspiration [Unknown]
  - Infection [Unknown]
  - Urinary tract infection [Unknown]
  - Hypoaesthesia [Not Recovered/Not Resolved]
  - Pain in extremity [Unknown]
